FAERS Safety Report 6866761-7 (Version None)
Quarter: 2010Q3

REPORT INFORMATION
  Report Type: 
  Country: None (occurrence: None)
  Receive Date: 20100722
  Receipt Date: 20100714
  Transmission Date: 20110219
  Serious: Yes (Death, Other)
  Sender: FDA-Public Use
  Company Number: FR-PFIZER INC-2010087860

PATIENT
  Age: 46 Year
  Sex: Male

DRUGS (2)
  1. SUNITINIB MALATE [Suspect]
     Indication: METASTATIC RENAL CELL CARCINOMA
     Dosage: UNK
  2. SUNITINIB MALATE [Suspect]
     Dosage: 37.5 MG, 1X/DAY

REACTIONS (2)
  - DUODENAL ULCER PERFORATION [None]
  - GASTROINTESTINAL HAEMORRHAGE [None]
